FAERS Safety Report 9556395 (Version 1)
Quarter: 2013Q3

REPORT INFORMATION
  Report Type: Spontaneous
  Country: BR (occurrence: BR)
  Receive Date: 20130926
  Receipt Date: 20130926
  Transmission Date: 20140515
  Serious: Yes (Hospitalization, Other)
  Sender: FDA-Public Use
  Company Number: BR-ASTRAZENECA-2013SE70407

PATIENT
  Age: 59 Year
  Sex: Male
  Weight: 73 kg

DRUGS (10)
  1. ATACAND HCT [Suspect]
     Indication: HYPERTENSION
     Dosage: 16/12.5 MG, UNKNOWN FREQUENCY
     Route: 048
     Dates: start: 2011
  2. CRESTOR [Suspect]
     Indication: BLOOD CHOLESTEROL INCREASED
     Route: 048
     Dates: start: 2011
  3. BRILINTA [Suspect]
     Indication: PROPHYLAXIS
     Route: 048
     Dates: start: 201211, end: 201309
  4. ZETIA [Concomitant]
     Indication: PROPHYLAXIS
     Dates: start: 2012
  5. CEBRALAT [Concomitant]
     Dates: start: 2012
  6. ASPIRINA PREVENT [Concomitant]
     Dates: start: 2003
  7. METHOTREXATE (COMPOUNDED PRODUCT) [Concomitant]
     Indication: RHEUMATIC DISORDER
     Dosage: ONCE A WEEK
     Dates: start: 2012
  8. METHOTREXATE (COMPOUNDED PRODUCT) [Concomitant]
     Indication: RHEUMATOID ARTHRITIS
     Dosage: ONCE A WEEK
     Dates: start: 2012
  9. FOLIC ACID [Concomitant]
     Indication: LIVER DISORDER
     Dates: start: 2012
  10. WELLBUTRIN [Concomitant]
     Indication: ANXIETY
     Dates: start: 201309

REACTIONS (7)
  - Venous occlusion [Recovered/Resolved]
  - Myocardial infarction [Recovered/Resolved]
  - Polyp [Recovered/Resolved]
  - Anxiety [Unknown]
  - Rheumatoid arthritis [Unknown]
  - Rheumatic disorder [Unknown]
  - Hyperkeratosis [Unknown]
